FAERS Safety Report 19896310 (Version 1)
Quarter: 2021Q3

REPORT INFORMATION
  Report Type: Spontaneous
  Country: GB (occurrence: GB)
  Receive Date: 20210929
  Receipt Date: 20210929
  Transmission Date: 20211014
  Serious: Yes (Hospitalization)
  Sender: FDA-Public Use
  Company Number: GB-PFIZER INC-202101226640

PATIENT
  Age: 8 Year
  Sex: Male
  Weight: 35 kg

DRUGS (1)
  1. SIROLIMUS. [Suspect]
     Active Substance: SIROLIMUS
     Indication: ALLOGENIC BONE MARROW TRANSPLANTATION THERAPY
     Dosage: 1.6 MG OF THE LIQUID PREPARATION GIVEN WITHOUT FURTHER DILUTING
     Route: 048
     Dates: start: 20210717, end: 20210909

REACTIONS (3)
  - Product preparation error [Unknown]
  - Gastric haemorrhage [Recovered/Resolved]
  - Off label use [Unknown]

NARRATIVE: CASE EVENT DATE: 20210717
